FAERS Safety Report 7532987-2 (Version None)
Quarter: 2011Q2

REPORT INFORMATION
  Report Type: 
  Country: None (occurrence: None)
  Receive Date: 20110607
  Receipt Date: 20110607
  Transmission Date: 20111010
  Serious: No
  Sender: FDA-Public Use
  Company Number: None

PATIENT
  Age: 61 Year
  Sex: Female
  Weight: 68.4932 kg

DRUGS (2)
  1. LEVAQUIN [Suspect]
     Indication: SINUSITIS
     Dates: start: 20110309, end: 20110317
  2. OFLOXACIN [Suspect]
     Indication: INFECTION PROPHYLAXIS
     Dosage: 5 DROPS 2X DAILY INTRAOCULA
     Route: 031
     Dates: start: 20110521, end: 20110526

REACTIONS (5)
  - TENDON PAIN [None]
  - MUSCLE TWITCHING [None]
  - JOINT CREPITATION [None]
  - BURNING SENSATION [None]
  - MUSCLE CONTRACTIONS INVOLUNTARY [None]
